FAERS Safety Report 5079010-X (Version None)
Quarter: 2006Q3

REPORT INFORMATION
  Report Type: 
  Country: None (occurrence: None)
  Receive Date: 20060809
  Receipt Date: 20060727
  Transmission Date: 20061208
  Serious: Yes (Hospitalization, Other)
  Sender: FDA-Public Use
  Company Number: 2006093377

PATIENT
  Age: 43 Year
  Sex: Male

DRUGS (2)
  1. DILANTIN KAPSEAL [Suspect]
     Indication: CONVULSION
     Dosage: 300 MG (300 MG, 1 IN 1 D)
     Dates: start: 20060309, end: 20060716
  2. DEPAKOTE [Suspect]
     Indication: DRUG USE FOR UNKNOWN INDICATION
     Dosage: 1500 MG (500 MG, 3 IN 1 D)
     Dates: start: 20060609

REACTIONS (25)
  - ABDOMINAL PAIN UPPER [None]
  - APHASIA [None]
  - ARTHRALGIA [None]
  - ASTERIXIS [None]
  - ASTHENIA [None]
  - AURA [None]
  - CEREBRAL ATROPHY [None]
  - CONFUSIONAL STATE [None]
  - DRUG INEFFECTIVE [None]
  - DRUG LEVEL DECREASED [None]
  - DYSKINESIA [None]
  - DYSPHONIA [None]
  - EPILEPTIC AURA [None]
  - FATIGUE [None]
  - GRAND MAL CONVULSION [None]
  - IRRITABILITY [None]
  - MEMORY IMPAIRMENT [None]
  - MOOD SWINGS [None]
  - MULTIPLE ALLERGIES [None]
  - NERVOUS SYSTEM DISORDER [None]
  - SOMNOLENCE [None]
  - THINKING ABNORMAL [None]
  - THROAT IRRITATION [None]
  - TREMOR [None]
  - VOMITING [None]
